FAERS Safety Report 10646854 (Version 4)
Quarter: 2015Q3

REPORT INFORMATION
  Report Type: Report from Study
  Country: US (occurrence: US)
  Receive Date: 20141211
  Receipt Date: 20150819
  Transmission Date: 20151125
  Serious: No
  Sender: FDA-Public Use
  Company Number: US-GILEAD-2014-0125964

PATIENT
  Age: 60 Year
  Sex: Female

DRUGS (1)
  1. AMBRISENTAN [Suspect]
     Active Substance: AMBRISENTAN
     Indication: PRODUCT USED FOR UNKNOWN INDICATION
     Dosage: 10 MG, QD
     Route: 065
     Dates: start: 20130214

REACTIONS (6)
  - Muscle spasms [Unknown]
  - Irritable bowel syndrome [Unknown]
  - Localised oedema [Unknown]
  - Abdominal pain upper [Unknown]
  - Nausea [Unknown]
  - Pruritus [Unknown]
